FAERS Safety Report 4463427-8 (Version None)
Quarter: 2004Q3

REPORT INFORMATION
  Report Type: 
  Country: None (occurrence: None)
  Receive Date: 20040928
  Receipt Date: 20040914
  Transmission Date: 20050211
  Serious: Yes (Death)
  Sender: FDA-Public Use
  Company Number: 2004AL000157

PATIENT
  Age: 54 Year
  Sex: Female

DRUGS (1)
  1. KADIAN [Suspect]

REACTIONS (1)
  - DRUG TOXICITY [None]
